FAERS Safety Report 6436546-4 (Version None)
Quarter: 2009Q4

REPORT INFORMATION
  Report Type: 
  Country: None (occurrence: None)
  Receive Date: 20091111
  Receipt Date: 20091030
  Transmission Date: 20100525
  Serious: Yes (Other)
  Sender: FDA-Public Use
  Company Number: FR-TYCO HEALTHCARE/MALLINCKRODT-T200901963

PATIENT
  Sex: Female

DRUGS (3)
  1. OPTIRAY 350 [Suspect]
     Indication: COMPUTERISED TOMOGRAM THORAX
     Dosage: UNK
     Route: 042
     Dates: start: 20090623, end: 20090623
  2. MICARDIS [Concomitant]
     Dosage: 80 MG, QD
     Route: 048
  3. SERENASE                           /00027401/ [Concomitant]
     Dosage: 2 MG, QD
     Route: 048

REACTIONS (2)
  - EYELID OEDEMA [None]
  - RASH GENERALISED [None]
